FAERS Safety Report 10583822 (Version 2)
Quarter: 2014Q4

REPORT INFORMATION
  Report Type: Spontaneous
  Country: US (occurrence: US)
  Receive Date: 20141114
  Receipt Date: 20141120
  Transmission Date: 20150529
  Serious: Yes (Other)
  Sender: FDA-Public Use
  Company Number: CHPA2014US015246

PATIENT
  Age: 67 Year
  Sex: Female

DRUGS (1)
  1. VOLTAREN [Suspect]
     Active Substance: DICLOFENAC SODIUM
     Indication: ARTHRITIS
     Dosage: UNK, PRN SPARINGLY
     Route: 061
     Dates: start: 2012, end: 2014

REACTIONS (6)
  - Neck pain [Unknown]
  - Rectal haemorrhage [Recovered/Resolved]
  - Musculoskeletal pain [Unknown]
  - Back pain [Unknown]
  - Wrong technique in drug usage process [Unknown]
  - Haematuria [Unknown]

NARRATIVE: CASE EVENT DATE: 2012
